FAERS Safety Report 6096255-0 (Version None)
Quarter: 2009Q1

REPORT INFORMATION
  Report Type: 
  Country: None (occurrence: None)
  Receive Date: 20090227
  Receipt Date: 20081022
  Transmission Date: 20090719
  Serious: No
  Sender: FDA-Public Use
  Company Number: A0753053A

PATIENT
  Sex: Female

DRUGS (3)
  1. LAMICTAL [Suspect]
     Indication: DEPRESSION
     Dosage: 100MG PER DAY
     Route: 048
     Dates: start: 20081001
  2. TARCEVA [Concomitant]
  3. XANAX [Concomitant]

REACTIONS (3)
  - ERYTHEMA [None]
  - EXFOLIATIVE RASH [None]
  - PRURITUS [None]
